FAERS Safety Report 7336180-8 (Version None)
Quarter: 2011Q1

REPORT INFORMATION
  Report Type: 
  Country: None (occurrence: None)
  Receive Date: 20110307
  Receipt Date: 20110302
  Transmission Date: 20110831
  Serious: Yes (Hospitalization, Other)
  Sender: FDA-Public Use
  Company Number: US-PFIZER INC-2009194705

PATIENT
  Sex: Female
  Weight: 70 kg

DRUGS (10)
  1. CHANTIX [Suspect]
     Indication: SMOKING CESSATION THERAPY
     Dosage: 1 MG (ONE PILL) DAILY
     Dates: start: 20080301, end: 20081101
  2. VALIUM [Concomitant]
     Indication: ANXIETY
     Dosage: 10 MG, 4X/DAY AS NEEDED
  3. SYNTHROID [Concomitant]
     Indication: THYROID DISORDER
     Dosage: UNK
     Dates: start: 20000101
  4. PLAVIX [Concomitant]
     Indication: ANTICOAGULANT THERAPY
     Dosage: 75 MG, DAILY
     Dates: start: 20060101, end: 20100101
  5. DARVOCET [Concomitant]
     Indication: ANALGESIC THERAPY
     Dosage: AS NEEDED EVERY FOUR HOURS
     Dates: start: 20000101, end: 20101101
  6. DIAZEPAM [Concomitant]
     Indication: ANXIETY
     Dosage: UNK
     Dates: start: 20000101
  7. PLAVIX [Concomitant]
     Dosage: UNK
     Dates: start: 20060101, end: 20100101
  8. DARVOCET [Concomitant]
     Dosage: UNK
     Dates: start: 20000101, end: 20101101
  9. LEVOTHYROXINE [Concomitant]
     Indication: THYROID DISORDER
     Dosage: UNK
     Dates: start: 20000101
  10. PREDNISONE [Concomitant]
     Dosage: ILLEGIBLE DAILY

REACTIONS (32)
  - CONVULSION [None]
  - RHEUMATOID ARTHRITIS [None]
  - ABNORMAL DREAMS [None]
  - MYOCARDIAL ISCHAEMIA [None]
  - THINKING ABNORMAL [None]
  - LOSS OF CONSCIOUSNESS [None]
  - ROAD TRAFFIC ACCIDENT [None]
  - FEAR [None]
  - IRRITABILITY [None]
  - NAUSEA [None]
  - ANXIETY DISORDER [None]
  - AVOIDANT PERSONALITY DISORDER [None]
  - PANIC ATTACK [None]
  - DISTURBANCE IN ATTENTION [None]
  - EMOTIONAL DISTRESS [None]
  - DECREASED APPETITE [None]
  - OSTEOARTHRITIS [None]
  - MAJOR DEPRESSION [None]
  - ANGER [None]
  - HYPOTHYROIDISM [None]
  - SLEEP DISORDER [None]
  - PYREXIA [None]
  - LYMPHOCYTE COUNT INCREASED [None]
  - INJURY [None]
  - TIBIA FRACTURE [None]
  - SCAR [None]
  - INFECTION [None]
  - THERMAL BURN [None]
  - ACTIVITIES OF DAILY LIVING IMPAIRED [None]
  - CHILLS [None]
  - ASTHENIA [None]
  - FATIGUE [None]
